FAERS Safety Report 6417864-2 (Version None)
Quarter: 2009Q4

REPORT INFORMATION
  Report Type: 
  Country: None (occurrence: None)
  Receive Date: 20091028
  Receipt Date: 20091021
  Transmission Date: 20100525
  Serious: Yes (Death, Hospitalization)
  Sender: FDA-Public Use
  Company Number: A0803849A

PATIENT
  Age: 48 Year
  Sex: Female

DRUGS (2)
  1. TYKERB [Suspect]
     Dosage: 1000MGD PER DAY
     Route: 048
     Dates: start: 20080701, end: 20081101
  2. TAXOTERE [Suspect]
     Dates: start: 20070101, end: 20081101

REACTIONS (6)
  - DEEP VEIN THROMBOSIS [None]
  - DIARRHOEA [None]
  - LEUKOPENIA [None]
  - OEDEMA [None]
  - PNEUMONIA [None]
  - VOMITING [None]
